FAERS Safety Report 20709570 (Version 1)
Quarter: 2022Q2

REPORT INFORMATION
  Report Type: Spontaneous
  Country: US (occurrence: US)
  Receive Date: 20220414
  Receipt Date: 20220414
  Transmission Date: 20220720
  Serious: No
  Sender: FDA-Public Use
  Company Number: US-BIOGEN-2022BI01112170

PATIENT
  Sex: Female

DRUGS (1)
  1. TECFIDERA [Suspect]
     Active Substance: DIMETHYL FUMARATE
     Indication: Multiple sclerosis
     Route: 065
     Dates: end: 20211221

REACTIONS (3)
  - Prescribed underdose [Recovered/Resolved]
  - Flushing [Not Recovered/Not Resolved]
  - Hot flush [Not Recovered/Not Resolved]
